FAERS Safety Report 8504169 (Version 8)
Quarter: 2013Q3

REPORT INFORMATION
  Report Type: Report from Study
  Country: FR (occurrence: FR)
  Receive Date: 20120411
  Receipt Date: 20130910
  Transmission Date: 20140515
  Serious: Yes (Hospitalization)
  Sender: FDA-Public Use
  Company Number: FR-ROCHE-1039722

PATIENT
  Age: 47 Year
  Sex: Male
  Weight: 58.5 kg

DRUGS (18)
  1. BEVACIZUMAB [Suspect]
     Indication: LUNG NEOPLASM MALIGNANT
     Dosage: LAST DOSE PRIOR TO SAE 26/JAN/2012
     Route: 042
     Dates: start: 20120105, end: 20120126
  2. PEMETREXED [Suspect]
     Indication: LUNG NEOPLASM MALIGNANT
     Dosage: LAST DOSE PRIOR TO SAE 26/JAN/2012
     Route: 042
     Dates: start: 20120105
  3. FUNGIZONE [Concomitant]
     Route: 065
     Dates: start: 20120106, end: 20120115
  4. TAVANIC [Concomitant]
     Route: 065
     Dates: start: 20120115, end: 20120207
  5. ACID FOLIC [Concomitant]
     Route: 065
     Dates: start: 20111226
  6. AVLOCARDYL [Concomitant]
     Route: 065
     Dates: start: 20110928
  7. FORLAX (FRANCE) [Concomitant]
     Route: 065
     Dates: start: 20110809
  8. DIFFU K [Concomitant]
     Route: 065
     Dates: start: 20110207
  9. FENTANYL [Concomitant]
     Dosage: DOSE: 150 MG/72 HRS
     Route: 065
     Dates: start: 20120112
  10. SKENAN [Concomitant]
     Dosage: PRN
     Route: 065
     Dates: start: 20120809
  11. ACTISKENAN [Concomitant]
     Route: 065
     Dates: start: 20120809
  12. ONBREZ [Concomitant]
     Dosage: BREEZHALER
     Route: 065
     Dates: start: 20120201
  13. INEXIUM [Concomitant]
     Dosage: PRN
     Route: 065
     Dates: start: 20120112
  14. PARACETAMOL [Concomitant]
     Dosage: PRN
     Route: 065
     Dates: start: 20120112
  15. CELEBREX [Concomitant]
     Route: 065
     Dates: start: 20111122
  16. ZOPHREN [Concomitant]
     Dosage: PRN
     Route: 065
     Dates: start: 20120127
  17. VITAMIN B12 [Concomitant]
     Route: 065
     Dates: start: 20111227
  18. VOGALENE [Concomitant]
     Route: 065
     Dates: start: 20111122

REACTIONS (1)
  - Renal tubular disorder [Recovered/Resolved]
